FAERS Safety Report 16404174 (Version 1)
Quarter: 2019Q2

REPORT INFORMATION
  Report Type: Spontaneous
  Country: US (occurrence: US)
  Receive Date: 20190501
  Receipt Date: 20190501
  Transmission Date: 20190711
  Serious: Yes (Hospitalization)
  Sender: FDA-Public Use
  Company Number: None

PATIENT
  Age: 19 Year
  Sex: Male

DRUGS (1)
  1. SANDOSTATIN LAR DEPOT [Suspect]
     Active Substance: OCTREOTIDE ACETATE
     Indication: ACROMEGALY
     Dosage: ?          OTHER FREQUENCY:Q28DS;?
     Route: 030
     Dates: start: 20181012

REACTIONS (1)
  - Pituitary tumour removal [None]

NARRATIVE: CASE EVENT DATE: 201904
